FAERS Safety Report 14863488 (Version 1)
Quarter: 2018Q2

REPORT INFORMATION
  Report Type: Spontaneous
  Country: US (occurrence: US)
  Receive Date: 20180508
  Receipt Date: 20180508
  Transmission Date: 20180711
  Serious: No
  Sender: FDA-Public Use
  Company Number: US-ALKERMES INC.-ALK-2017-002871

PATIENT
  Age: 27 Year
  Sex: Male
  Weight: 70.3 kg

DRUGS (1)
  1. VIVITROL [Suspect]
     Active Substance: NALTREXONE
     Indication: DRUG DEPENDENCE
     Dosage: 380 MG, QMO
     Route: 030
     Dates: start: 201411, end: 201507

REACTIONS (7)
  - Inappropriate schedule of drug administration [Recovered/Resolved]
  - Contusion [Unknown]
  - Sleep disorder [Unknown]
  - Decreased appetite [Unknown]
  - Discomfort [Recovered/Resolved]
  - Drug dependence [Unknown]
  - Alcohol abuse [Unknown]

NARRATIVE: CASE EVENT DATE: 201411
